FAERS Safety Report 4713310-5 (Version None)
Quarter: 2005Q3

REPORT INFORMATION
  Report Type: 
  Country: None (occurrence: None)
  Receive Date: 20050713
  Receipt Date: 20050711
  Transmission Date: 20060218
  Serious: Yes (Disabling)
  Sender: FDA-Public Use
  Company Number: US-GLAXOSMITHKLINE-A0565792A

PATIENT
  Age: 72 Year
  Sex: Female

DRUGS (1)
  1. VALTREX [Suspect]
     Dosage: 500MG PER DAY
     Route: 048

REACTIONS (4)
  - FEELING ABNORMAL [None]
  - MALAISE [None]
  - TYMPANIC MEMBRANE SCARRING [None]
  - VERTIGO [None]
